FAERS Safety Report 20913357 (Version 1)
Quarter: 2022Q2

REPORT INFORMATION
  Report Type: Spontaneous
  Country: US (occurrence: US)
  Receive Date: 20220603
  Receipt Date: 20220603
  Transmission Date: 20220721
  Serious: Yes (Death, Other)
  Sender: FDA-Public Use
  Company Number: US-OTSUKA-2022_030077

PATIENT
  Sex: Female

DRUGS (17)
  1. BUSULFAN [Suspect]
     Active Substance: BUSULFAN
     Indication: Second primary malignancy
     Dosage: UNK
     Route: 065
  2. BUSULFAN [Suspect]
     Active Substance: BUSULFAN
     Indication: Myeloid leukaemia
  3. FLUDARABINE [Suspect]
     Active Substance: FLUDARABINE PHOSPHATE
     Indication: Second primary malignancy
     Dosage: UNK
     Route: 065
  4. FLUDARABINE [Suspect]
     Active Substance: FLUDARABINE PHOSPHATE
     Indication: Myeloid leukaemia
  5. MELPHALAN [Suspect]
     Active Substance: MELPHALAN
     Indication: Second primary malignancy
     Dosage: UNK
     Route: 065
  6. MELPHALAN [Suspect]
     Active Substance: MELPHALAN
     Indication: Myeloid leukaemia
  7. LAPINE T-LYMPHOCYTE IMMUNE GLOBULIN [Suspect]
     Active Substance: LAPINE T-LYMPHOCYTE IMMUNE GLOBULIN
     Indication: Second primary malignancy
     Dosage: UNK
     Route: 065
  8. LAPINE T-LYMPHOCYTE IMMUNE GLOBULIN [Suspect]
     Active Substance: LAPINE T-LYMPHOCYTE IMMUNE GLOBULIN
     Indication: Myeloid leukaemia
  9. TACROLIMUS [Suspect]
     Active Substance: TACROLIMUS
     Indication: Second primary malignancy
     Dosage: UNK
     Route: 065
  10. TACROLIMUS [Suspect]
     Active Substance: TACROLIMUS
     Indication: Myeloid leukaemia
  11. MYCOPHENOLATE MOFETIL [Suspect]
     Active Substance: MYCOPHENOLATE MOFETIL
     Indication: Second primary malignancy
     Dosage: UNK
     Route: 065
  12. MYCOPHENOLATE MOFETIL [Suspect]
     Active Substance: MYCOPHENOLATE MOFETIL
     Indication: Myeloid leukaemia
  13. CLOFARABINE [Suspect]
     Active Substance: CLOFARABINE
     Indication: Second primary malignancy
     Dosage: UNK
     Route: 065
  14. CLOFARABINE [Suspect]
     Active Substance: CLOFARABINE
     Indication: Myeloid leukaemia
  15. CYTARABINE [Concomitant]
     Active Substance: CYTARABINE
     Indication: Leukocytosis
     Dosage: 40 MG/M2/DOSE
     Route: 065
  16. CYTARABINE [Concomitant]
     Active Substance: CYTARABINE
     Dosage: 2000 MG/M2/DOSE
     Route: 065
  17. DECITABINE [Concomitant]
     Active Substance: DECITABINE
     Indication: Leukocytosis
     Dosage: UNK
     Route: 065

REACTIONS (14)
  - Cardiac arrest [Fatal]
  - Acute kidney injury [Unknown]
  - Acute hepatic failure [Unknown]
  - Abdominal compartment syndrome [Unknown]
  - Metabolic disorder [Unknown]
  - Intestinal infarction [Unknown]
  - Hypercalcaemia [Unknown]
  - Hyperleukocytosis [Unknown]
  - Shock haemorrhagic [Unknown]
  - Cardiogenic shock [Unknown]
  - Coagulopathy [Unknown]
  - Haemorrhage [Unknown]
  - Anaemia [Unknown]
  - Product use in unapproved indication [Unknown]
